FAERS Safety Report 19660890 (Version 1)
Quarter: 2021Q3

REPORT INFORMATION
  Report Type: Spontaneous
  Country: US (occurrence: US)
  Receive Date: 20210805
  Receipt Date: 20210805
  Transmission Date: 20211014
  Serious: No
  Sender: FDA-Public Use
  Company Number: None

PATIENT

DRUGS (1)
  1. HEPARIN [Suspect]
     Active Substance: HEPARIN SODIUM
     Dosage: ?          OTHER STRENGTH:25,000UNITS/250ML;?

REACTIONS (3)
  - Anticoagulation drug level increased [None]
  - Product administration error [None]
  - Haematochezia [None]
